FAERS Safety Report 6171661-4 (Version None)
Quarter: 2009Q2

REPORT INFORMATION
  Report Type: 
  Country: None (occurrence: None)
  Receive Date: 20090428
  Receipt Date: 20090428
  Transmission Date: 20091009
  Serious: Yes (Other)
  Sender: FDA-Public Use
  Company Number: None

PATIENT
  Age: 59 Year
  Sex: Male
  Weight: 62.1428 kg

DRUGS (1)
  1. OMEPRAZOLE [Suspect]
     Indication: IMPAIRED GASTRIC EMPTYING
     Dosage: 20 MG ONCE A DAY PO
     Route: 048
     Dates: start: 19910101, end: 20090415

REACTIONS (2)
  - MUSCLE TWITCHING [None]
  - TREMOR [None]
